FAERS Safety Report 8816552 (Version 1)
Quarter: 2012Q4

REPORT INFORMATION
  Report Type: Spontaneous
  Country: US (occurrence: None)
  Receive Date: 20121001
  Receipt Date: 20121001
  Transmission Date: 20130627
  Serious: Yes (Death, Hospitalization)
  Sender: FDA-Public Use
  Company Number: None

PATIENT
  Age: 70 Year
  Sex: Female
  Weight: 79.83 kg

DRUGS (1)
  1. NORDITROPEN [Suspect]
     Dosage: 0.5 mg qd sc
     Route: 058

REACTIONS (4)
  - Movement disorder [None]
  - Dyspnoea [None]
  - Cardiac disorder [None]
  - Death [None]
